FAERS Safety Report 18799786 (Version 1)
Quarter: 2021Q1

REPORT INFORMATION
  Report Type: Spontaneous
  Country: ES (occurrence: ES)
  Receive Date: 20210128
  Receipt Date: 20210128
  Transmission Date: 20210419
  Serious: Yes (Other)
  Sender: FDA-Public Use
  Company Number: ES-ASTELLAS-2021US002779

PATIENT
  Age: 65 Year
  Sex: Female
  Weight: 61 kg

DRUGS (14)
  1. CERTICAN [Suspect]
     Active Substance: EVEROLIMUS
     Indication: PRODUCT USED FOR UNKNOWN INDICATION
     Dosage: UNK, UNKNOWN FREQ. (GIVEN TILL CUMULATIVE DOSE REACHED 3.75 MG/KG)
     Route: 065
  2. PREDNISONE. [Suspect]
     Active Substance: PREDNISONE
     Indication: PRODUCT USED FOR UNKNOWN INDICATION
     Dosage: UNK, UNKNOWN FREQ. (GIVEN TILL CUMULATIVE DOSE REACHED 3.75 MG/KG)
     Route: 065
  3. POLARAMINE [Suspect]
     Active Substance: DEXCHLORPHENIRAMINE MALEATE
     Indication: PREMEDICATION
     Dosage: UNK, UNKNOWN FREQ. (GIVEN TILL CUMULATIVE DOSE REACHED 3.75 MG/KG)
     Route: 042
  4. TIMOGLOBULINA [ANTITHYMOCYTE IMMUNOGLOBULIN] [Suspect]
     Active Substance: THYMOCYTE IMMUNE GLOBULIN NOS
     Indication: LUNG TRANSPLANT REJECTION
     Dosage: 1.5 MG/KG, GIVEN UNTIL CUMULATIVE DOSE REACHED 3.75 MG/KG
     Route: 042
     Dates: start: 20140214
  5. TIMOGLOBULINA [ANTITHYMOCYTE IMMUNOGLOBULIN] [Suspect]
     Active Substance: THYMOCYTE IMMUNE GLOBULIN NOS
     Dosage: 0.75 MG/KG, GIVEN UNTIL CUMULATIVE DOSE REACHED 3.75 MG/KG
     Route: 042
  6. SEPTRIN [Suspect]
     Active Substance: SULFAMETHOXAZOLE\TRIMETHOPRIM
     Indication: PRODUCT USED FOR UNKNOWN INDICATION
     Dosage: UNK, UNKNOWN FREQ. (GIVEN TILL CUMULATIVE DOSE REACHED 3.75 MG/KG_
     Route: 065
  7. OMEPRAZOLE. [Suspect]
     Active Substance: OMEPRAZOLE
     Indication: PRODUCT USED FOR UNKNOWN INDICATION
     Dosage: UNK UNK, UNKNOWN FREQ. (GIVEN TILL CUMULATIVE DOSE REACHED 3.75 MG/KG)
     Route: 065
  8. PARACETAMOL [Suspect]
     Active Substance: ACETAMINOPHEN
     Indication: PREMEDICATION
     Dosage: UNK, UNKNOWN FREQ. (GIVEN TILL CUMULATIVE DOSE REACHED 3.75 MG/KG)
     Route: 042
  9. AMBISOME [Suspect]
     Active Substance: AMPHOTERICIN B
     Indication: PRODUCT USED FOR UNKNOWN INDICATION
     Dosage: UNK UNK, UNKNOWN FREQ. (GIVEN TILL CUMULATIVE DOSE REACHED 3.75 MG/KG)
     Route: 065
  10. TIMOGLOBULINA [ANTITHYMOCYTE IMMUNOGLOBULIN] [Suspect]
     Active Substance: THYMOCYTE IMMUNE GLOBULIN NOS
     Dosage: 0.38 MG/KG, GIVEN UNTIL CUMULATIVE DOSE REACHED 3.75 MG/KG
     Route: 042
     Dates: end: 20140228
  11. AZITHROMYCIN ANHYDROUS. [Suspect]
     Active Substance: AZITHROMYCIN ANHYDROUS
     Indication: PRODUCT USED FOR UNKNOWN INDICATION
     Dosage: UNK, UNKNOWN FREQ. (GIVEN TILL CUMULATIVE DOSE REACHED 3.75 MG/KG)
     Route: 065
  12. TACROLIMUS. [Suspect]
     Active Substance: TACROLIMUS
     Indication: PRODUCT USED FOR UNKNOWN INDICATION
     Dosage: UNK UNK, UNKNOWN FREQ. (GIVEN TILL CUMULATIVE DOSE REACHED 3.75 MG/KG)
     Route: 065
  13. ACTOCORTINA [Suspect]
     Active Substance: HYDROCORTISONE SODIUM PHOSPHATE
     Indication: PREMEDICATION
     Dosage: 200 MG, UNKNOWN FREQ. (200 MG, GIVEN TILL CUMULATIVE DOSE REACHED 3.75 MG/KG)
     Route: 065
  14. PRIMPERAN [Suspect]
     Active Substance: METOCLOPRAMIDE HYDROCHLORIDE
     Indication: PREMEDICATION
     Dosage: UNK, UNKNOWN FREQ. (GIVEN TILL CUMULATIVE DOSE REACHED 3.75 MG/KG)
     Route: 042

REACTIONS (12)
  - Feeling abnormal [Recovered/Resolved]
  - Oxygen saturation decreased [Recovered/Resolved]
  - Myelosuppression [Recovered/Resolved]
  - Vomiting [Recovered/Resolved]
  - Off label use [Unknown]
  - Malaise [Recovered/Resolved]
  - Dyspnoea [Recovered/Resolved]
  - Nausea [Recovered/Resolved]
  - Drug intolerance [Recovered/Resolved]
  - Lymphopenia [Recovered/Resolved]
  - Leukopenia [Recovered/Resolved]
  - Mouth ulceration [Recovered/Resolved]

NARRATIVE: CASE EVENT DATE: 20140214
